FAERS Safety Report 9226404 (Version 1)
Quarter: 2013Q2

REPORT INFORMATION
  Report Type: Spontaneous
  Country: DE (occurrence: DE)
  Receive Date: 20130411
  Receipt Date: 20130411
  Transmission Date: 20140414
  Serious: Yes (Hospitalization, Other)
  Sender: FDA-Public Use
  Company Number: DE-UCBSA-076020

PATIENT
  Age: 13 Year
  Sex: Female
  Weight: 24.8 kg

DRUGS (3)
  1. VIMPAT [Suspect]
     Indication: EPILEPSY
     Route: 048
     Dates: start: 20121116, end: 20121230
  2. VIMPAT [Suspect]
     Indication: EPILEPSY
     Dosage: UNKNOWN DOSE
     Route: 048
     Dates: start: 20120912, end: 20121115
  3. ETHOSUXIMIDE [Concomitant]
     Indication: EPILEPSY
     Dosage: DAILY DOSE:750 MG, 250-0-500 MG
     Route: 048
     Dates: start: 201202

REACTIONS (1)
  - Status epilepticus [Recovered/Resolved]
